FAERS Safety Report 8071684-4 (Version None)
Quarter: 2012Q1

REPORT INFORMATION
  Report Type: 
  Country: None (occurrence: None)
  Receive Date: 20120125
  Receipt Date: 20120117
  Transmission Date: 20120608
  Serious: Yes (Hospitalization)
  Sender: FDA-Public Use
  Company Number: KR-ABBOTT-12P-090-0894683-00

PATIENT
  Age: 27 Year
  Sex: Male
  Weight: 55 kg

DRUGS (3)
  1. PENTASA [Concomitant]
     Indication: CROHN'S DISEASE
     Dosage: DAILY DOSE: 3000MG
     Route: 048
     Dates: start: 20050818
  2. HUMIRA [Suspect]
     Indication: CROHN'S DISEASE
     Dosage: INDUCTION THERAPY
     Dates: start: 20110511
  3. HUMIRA [Suspect]
     Dates: end: 20110609

REACTIONS (1)
  - INTESTINAL RESECTION [None]
